FAERS Safety Report 8904723 (Version 2)
Quarter: 2012Q4

REPORT INFORMATION
  Report Type: 
  Country: TW (occurrence: TW)
  Receive Date: 20121113
  Receipt Date: 20121122
  Transmission Date: 20130627
  Serious: Yes (Other)
  Sender: FDA-Public Use
  Company Number: PHHY2012TW102852

PATIENT
  Age: 34 Year
  Sex: Female

DRUGS (12)
  1. 5-FLUOROURACIL [Suspect]
     Indication: COLON CANCER
     Dosage: 400 mg/m2, UNK
     Route: 040
     Dates: start: 200805, end: 200808
  2. 5-FLUOROURACIL [Suspect]
     Indication: METASTASES TO LIVER
     Dosage: 600 mg/m2, (22-hour infusion)
     Dates: start: 200805, end: 200808
  3. 5-FLUOROURACIL [Suspect]
     Dosage: 400 mg/m2, UNK
     Dates: start: 20091023
  4. 5-FLUOROURACIL [Suspect]
     Dosage: 2400 mg/m2 (46h infusion)
     Dates: start: 20091023
  5. LEUCOVORIN CALCIUM [Suspect]
     Indication: COLON CANCER
     Dosage: 200 mg/m2, UNK
     Route: 042
     Dates: start: 200805, end: 200808
  6. LEUCOVORIN CALCIUM [Suspect]
     Indication: METASTASES TO LIVER
     Dosage: 200 mg/m2, UNK
     Dates: start: 20091023
  7. IRINOTECAN [Suspect]
     Indication: METASTASES TO LIVER
     Dosage: 180 mg/m2, UNK
     Route: 042
     Dates: start: 20091023
  8. IRINOTECAN [Suspect]
     Indication: COLON CANCER
  9. OXALIPLATIN [Suspect]
     Indication: COLON CANCER
     Dosage: 85 mg/m2, UNK
     Route: 042
     Dates: start: 200805, end: 200808
  10. OXALIPLATIN [Suspect]
     Indication: METASTASES TO LIVER
  11. ERBITUX [Suspect]
     Indication: COLON CANCER
     Dosage: 400 mg/m2 (loading dose)
     Dates: start: 20091023
  12. ERBITUX [Suspect]
     Indication: METASTASES TO LIVER
     Dosage: 250 mg/m2 (maitainence dose)
     Dates: start: 20091023

REACTIONS (6)
  - Vocal cord paralysis [Recovered/Resolved]
  - Dysphonia [Recovered/Resolved]
  - Chest pain [Recovered/Resolved]
  - Infusion site extravasation [Recovered/Resolved]
  - Device deployment issue [Recovered/Resolved]
  - Malignant neoplasm progression [Unknown]
